FAERS Safety Report 8263158-2 (Version None)
Quarter: 2012Q2

REPORT INFORMATION
  Report Type: 
  Country: None (occurrence: None)
  Receive Date: 20120405
  Receipt Date: 20120329
  Transmission Date: 20120825
  Serious: Yes (Hospitalization, Other)
  Sender: FDA-Public Use
  Company Number: US-ALEXION-A201200347

PATIENT
  Sex: Female
  Weight: 72.5 kg

DRUGS (16)
  1. ALBUTEROL [Concomitant]
     Dosage: UNK
  2. ASPIRIN [Concomitant]
     Dosage: UNK
     Route: 048
  3. MULTI-VITAMIN [Concomitant]
     Dosage: UNK
     Route: 048
  4. LOVENOX [Concomitant]
     Dosage: 100 MG, QD
     Route: 058
  5. ADVAIR DISKUS 100/50 [Concomitant]
     Dosage: UNK
  6. DILAUDID [Concomitant]
     Dosage: UNK
     Route: 047
  7. RESTORIL [Concomitant]
     Dosage: UNK
     Route: 048
  8. FOLIC ACID [Concomitant]
     Dosage: UNK
     Route: 048
  9. PHENERGAN HCL [Concomitant]
     Dosage: UNK
     Route: 030
  10. SOLIRIS [Suspect]
     Indication: PAROXYSMAL NOCTURNAL HAEMOGLOBINURIA
     Dosage: 900 MG, Q2W
     Route: 042
     Dates: start: 20120201
  11. SPIRIVA [Concomitant]
     Dosage: UNK
     Route: 048
  12. VANCOMYCIN HCL [Concomitant]
     Dosage: UNK
     Route: 048
  13. COLACE [Concomitant]
     Dosage: UNK
  14. PAXIL [Concomitant]
     Dosage: UNK
     Route: 048
  15. ARANESP [Concomitant]
     Dosage: UNK
  16. BENADRYL [Concomitant]
     Dosage: UNK
     Route: 048

REACTIONS (7)
  - DEVICE RELATED INFECTION [None]
  - PNEUMONIA [None]
  - MUSCULOSKELETAL PAIN [None]
  - BACTERAEMIA [None]
  - CONTUSION [None]
  - SERUM FERRITIN INCREASED [None]
  - INSOMNIA [None]
